FAERS Safety Report 6145471-8 (Version None)
Quarter: 2009Q2

REPORT INFORMATION
  Report Type: 
  Country: None (occurrence: None)
  Receive Date: 20090406
  Receipt Date: 20090325
  Transmission Date: 20091009
  Serious: Yes (Hospitalization, Other)
  Sender: FDA-Public Use
  Company Number: US-PFIZER INC-2009192842

PATIENT
  Sex: Female
  Weight: 58.957 kg

DRUGS (6)
  1. ZOLOFT [Suspect]
     Indication: ANXIETY
     Dosage: FREQUENCY: 1X/DAY, EVERY DAY;
  2. ZOLOFT [Suspect]
     Indication: DEPRESSION
  3. ZOLOFT [Suspect]
     Indication: POST-TRAUMATIC STRESS DISORDER
  4. ZOLOFT [Suspect]
     Indication: CONVULSION
  5. SERTRALINE HCL [Suspect]
     Indication: ANXIETY
     Dosage: 100 MG, 1X/DAY
  6. SERTRALINE HCL [Suspect]
     Indication: DEPRESSION

REACTIONS (7)
  - ABDOMINAL DISCOMFORT [None]
  - ANXIETY [None]
  - CONVULSION [None]
  - DEPRESSION [None]
  - MEMORY IMPAIRMENT [None]
  - MENTAL IMPAIRMENT [None]
  - POST-TRAUMATIC STRESS DISORDER [None]
